FAERS Safety Report 15727079 (Version 1)
Quarter: 2018Q4

REPORT INFORMATION
  Report Type: Report from Study
  Country: PR (occurrence: PR)
  Receive Date: 20181217
  Receipt Date: 20181217
  Transmission Date: 20190205
  Serious: Yes (Other)
  Sender: FDA-Public Use
  Company Number: PR-BIOGEN-2018BI00670091

PATIENT
  Sex: Female
  Weight: 86.26 kg

DRUGS (1)
  1. AVONEX [Suspect]
     Active Substance: INTERFERON BETA-1A
     Indication: MULTIPLE SCLEROSIS
     Route: 030
     Dates: start: 2005, end: 2018

REACTIONS (2)
  - Hypersensitivity [Unknown]
  - Chronic lymphocytic leukaemia [Unknown]
